FAERS Safety Report 26106721 (Version 1)
Quarter: 2025Q4

REPORT INFORMATION
  Report Type: Report from Study
  Country: SA (occurrence: SA)
  Receive Date: 20251201
  Receipt Date: 20251201
  Transmission Date: 20260118
  Serious: Yes (Other)
  Sender: ALEXION PHARMACEUTICALS
  Company Number: SA-AstraZeneca-CH-01002221A

PATIENT
  Age: 30 Year
  Sex: Female

DRUGS (2)
  1. FASENRA [Suspect]
     Active Substance: BENRALIZUMAB
     Indication: Asthma
     Dosage: 30 MILLIGRAM, Q8W
     Dates: start: 20241016, end: 20250616
  2. FASENRA [Suspect]
     Active Substance: BENRALIZUMAB

REACTIONS (4)
  - Hepatic enzyme increased [Not Recovered/Not Resolved]
  - Blood bilirubin increased [Not Recovered/Not Resolved]
  - Alopecia [Not Recovered/Not Resolved]
  - Blood test abnormal [Not Recovered/Not Resolved]
